FAERS Safety Report 25711567 (Version 1)
Quarter: 2025Q3

REPORT INFORMATION
  Report Type: Spontaneous
  Country: KR (occurrence: KR)
  Receive Date: 20250821
  Receipt Date: 20250821
  Transmission Date: 20251020
  Serious: Yes (Other)
  Sender: ELI LILLY AND COMPANY
  Company Number: KR-ELI_LILLY_AND_COMPANY-KR202508014188

PATIENT
  Sex: Female

DRUGS (3)
  1. TERIPARATIDE [Suspect]
     Active Substance: TERIPARATIDE
     Indication: Product used for unknown indication
     Route: 065
     Dates: start: 202401, end: 202402
  2. TERIPARATIDE [Suspect]
     Active Substance: TERIPARATIDE
     Route: 065
     Dates: start: 202504, end: 2025
  3. TERIPARATIDE [Suspect]
     Active Substance: TERIPARATIDE
     Route: 065
     Dates: start: 2025, end: 2025

REACTIONS (3)
  - Neoplasm malignant [Not Recovered/Not Resolved]
  - Rash erythematous [Not Recovered/Not Resolved]
  - Rash macular [Not Recovered/Not Resolved]

NARRATIVE: CASE EVENT DATE: 20250101
